FAERS Safety Report 9506537 (Version 1)
Quarter: 2013Q3

REPORT INFORMATION
  Report Type: Spontaneous
  Country: US (occurrence: None)
  Receive Date: 20130904
  Receipt Date: 20130904
  Transmission Date: 20140515
  Serious: Yes (Hospitalization)
  Sender: FDA-Public Use
  Company Number: IMP_06812_2013

PATIENT
  Age: 59 Year
  Sex: Male
  Weight: 105 kg

DRUGS (9)
  1. DIGOXIN (DIGOXIN) [Suspect]
     Indication: PRODUCT USED FOR UNKNOWN INDICATION
     Dosage: 125 UG MORNING [MANE]?
  2. CARVEDILOL [Concomitant]
  3. FUROSEMIDE [Concomitant]
  4. SPIRONOLACTONE [Concomitant]
  5. PERINDOPRIL [Concomitant]
  6. ASPIRIN [Concomitant]
  7. WARFARIN [Concomitant]
  8. INSULIN [Concomitant]
  9. DARBEPOETIN ALFA [Concomitant]

REACTIONS (10)
  - Abdominal pain [None]
  - Dyspnoea [None]
  - Lethargy [None]
  - Anxiety [None]
  - Venous pressure jugular [None]
  - Hyperkalaemia [None]
  - Toxicity to various agents [None]
  - Atrial fibrillation [None]
  - Cardiac failure congestive [None]
  - Renal failure acute [None]
